FAERS Safety Report 22931470 (Version 2)
Quarter: 2023Q4

REPORT INFORMATION
  Report Type: Spontaneous
  Country: US (occurrence: US)
  Receive Date: 20230911
  Receipt Date: 20231208
  Transmission Date: 20240109
  Serious: Yes (Other)
  Sender: FDA-Public Use
  Company Number: US-PFIZER INC-PV202300153129

PATIENT
  Age: 79 Year
  Sex: Female

DRUGS (1)
  1. IBRANCE [Suspect]
     Active Substance: PALBOCICLIB
     Dosage: TAKE 1 TABLET (100 MG TOTAL) BY MOUTH DAILY FOR 21 DAYS, THEN OFF FOR 7 DAYS
     Route: 048

REACTIONS (3)
  - Pulmonary oedema [Unknown]
  - Cough [Unknown]
  - Fatigue [Unknown]
